FAERS Safety Report 15458350 (Version 1)
Quarter: 2018Q3

REPORT INFORMATION
  Report Type: Spontaneous
  Country: US (occurrence: US)
  Receive Date: 20180928
  Receipt Date: 20180928
  Transmission Date: 20181010
  Serious: No
  Sender: FDA-Public Use
  Company Number: None

PATIENT
  Age: 57 Year
  Sex: Female
  Weight: 70.31 kg

DRUGS (8)
  1. FISH OIL [Concomitant]
     Active Substance: FISH OIL
  2. VALSARTAN + HYDRO TABLETS VALSARTAN/HCTZ [Suspect]
     Active Substance: HYDROCHLOROTHIAZIDE\VALSARTAN
     Indication: HYPERTENSION
     Route: 048
     Dates: start: 20150401, end: 20180723
  3. MAGNESIUM [Concomitant]
     Active Substance: MAGNESIUM
  4. CENTRUM [Concomitant]
     Active Substance: VITAMINS
  5. TURMERIC [Concomitant]
     Active Substance: HERBALS\TURMERIC
  6. CALCIUM [Concomitant]
     Active Substance: CALCIUM
  7. COQ 10 [Suspect]
     Active Substance: UBIDECARENONE
  8. BEET. [Concomitant]
     Active Substance: BEET

REACTIONS (11)
  - Lip blister [None]
  - Tongue ulceration [None]
  - Swollen tongue [None]
  - Pain [None]
  - Chapped lips [None]
  - Blood pressure increased [None]
  - Drug effect decreased [None]
  - Lip swelling [None]
  - Product use issue [None]
  - Drug hypersensitivity [None]
  - Eating disorder [None]
